FAERS Safety Report 9826922 (Version 1)
Quarter: 2013Q4

REPORT INFORMATION
  Report Type: Spontaneous
  Country: US (occurrence: None)
  Receive Date: 20131223
  Receipt Date: 20131223
  Transmission Date: 20140711
  Serious: Yes (Other)
  Sender: FDA-Public Use
  Company Number: 220669LEO

PATIENT
  Sex: Female

DRUGS (2)
  1. PICATO [Suspect]
     Indication: PRECANCEROUS SKIN LESION
     Dosage: ON CHEEKS, NOSE
     Dates: start: 20130222
  2. PROZAC (FLUOXETINE) [Concomitant]

REACTIONS (3)
  - Application site irritation [None]
  - Application site swelling [None]
  - Drug administered at inappropriate site [None]
